FAERS Safety Report 6277903-9 (Version None)
Quarter: 2009Q3

REPORT INFORMATION
  Report Type: 
  Country: None (occurrence: None)
  Receive Date: 20090722
  Receipt Date: 20090716
  Transmission Date: 20100115
  Serious: Yes (Other)
  Sender: FDA-Public Use
  Company Number: US-B.I. PHARMACEUTICALS,INC./RIDGEFIELD-2009-BP-08573BP

PATIENT
  Sex: Male

DRUGS (1)
  1. FLOMAX [Suspect]
     Dates: start: 20030101

REACTIONS (1)
  - PROSTATE CANCER [None]
